FAERS Safety Report 24790528 (Version 1)
Quarter: 2024Q4

REPORT INFORMATION
  Report Type: Spontaneous
  Country: FR (occurrence: FR)
  Receive Date: 20241230
  Receipt Date: 20241230
  Transmission Date: 20250115
  Serious: Yes (Hospitalization)
  Sender: TEVA
  Company Number: None

PATIENT
  Age: 53 Year
  Sex: Male
  Weight: 79 kg

DRUGS (6)
  1. CLOZAPINE [Suspect]
     Active Substance: CLOZAPINE
     Indication: Wrong patient received product
     Dosage: TIME INTERVAL: TOTAL
     Route: 048
     Dates: start: 20240817, end: 20240817
  2. VALPROATE SODIUM [Suspect]
     Active Substance: VALPROATE SODIUM
     Indication: Epilepsy
     Dosage: FILM-COATED TABLET WITH PROLONGED RELEASE
     Route: 048
  3. LACOSAMIDE [Suspect]
     Active Substance: LACOSAMIDE
     Indication: Epilepsy
     Route: 048
  4. CLOBAZAM [Suspect]
     Active Substance: CLOBAZAM
     Indication: Wrong patient received product
     Dosage: TIME INTERVAL: TOTAL
     Route: 048
     Dates: start: 20240817, end: 20240817
  5. CLOBAZAM [Suspect]
     Active Substance: CLOBAZAM
     Indication: Epilepsy
     Route: 048
  6. ZOPICLONE [Suspect]
     Active Substance: ZOPICLONE
     Indication: Wrong patient received product
     Dosage: TIME INTERVAL: TOTAL
     Route: 048
     Dates: start: 20240817, end: 20240817

REACTIONS (4)
  - Epilepsy [Recovered/Resolved]
  - Wrong patient received product [Recovered/Resolved]
  - Product dose omission in error [Recovered/Resolved]
  - Somnolence [Recovered/Resolved]

NARRATIVE: CASE EVENT DATE: 20240817
